FAERS Safety Report 8517514-5 (Version None)
Quarter: 2012Q3

REPORT INFORMATION
  Report Type: 
  Country: None (occurrence: None)
  Receive Date: 20120718
  Receipt Date: 20120706
  Transmission Date: 20120928
  Serious: Yes (Disabling, Other)
  Sender: FDA-Public Use
  Company Number: US-BAYER-2012-068138

PATIENT
  Age: 69 Year
  Sex: Female
  Weight: 94.785 kg

DRUGS (4)
  1. TRIAMTERENE AND HYDROCHLOROTHIAZID [Concomitant]
     Dosage: TAB 37.5-25
  2. CAPTOPRIL [Concomitant]
     Dosage: TAB 12.5MG
  3. NEXAVAR [Suspect]
     Dosage: 400 MG, BID
     Route: 048
     Dates: start: 20120704
  4. ALLOPURINOL [Concomitant]
     Dosage: TAB 100MG

REACTIONS (7)
  - MUSCULOSKELETAL PAIN [None]
  - JOINT STIFFNESS [None]
  - ABDOMINAL PAIN UPPER [None]
  - CARDIAC FLUTTER [None]
  - NAUSEA [None]
  - PAIN IN JAW [None]
  - ARTHRALGIA [None]
